FAERS Safety Report 10228269 (Version 1)
Quarter: 2014Q2

REPORT INFORMATION
  Report Type: Spontaneous
  Country: US (occurrence: US)
  Receive Date: 20140610
  Receipt Date: 20140610
  Transmission Date: 20141212
  Serious: Yes (Other)
  Sender: FDA-Public Use
  Company Number: US-SA-2014SA074646

PATIENT
  Sex: Male

DRUGS (2)
  1. NASACORT [Suspect]
     Indication: MULTIPLE ALLERGIES
     Dosage: TAKEN FROM- 1 WEEK AGO, DOSE-1 SPRAY EACH NOSTRIL
     Route: 045
  2. NASACORT [Suspect]
     Indication: MULTIPLE ALLERGIES
     Dosage: TAKEN FROM- 1 WEEK AGO
     Route: 045

REACTIONS (2)
  - Sinusitis [Unknown]
  - Drug ineffective [Unknown]
